FAERS Safety Report 10872040 (Version 1)
Quarter: 2015Q1

REPORT INFORMATION
  Report Type: Spontaneous
  Country: US (occurrence: None)
  Receive Date: 20150223
  Receipt Date: 20150223
  Transmission Date: 20150721
  Serious: No
  Sender: FDA-Public Use
  Company Number: None

PATIENT
  Age: 73 Year
  Sex: Female
  Weight: 85.28 kg

DRUGS (8)
  1. VESICARE [Suspect]
     Active Substance: SOLIFENACIN SUCCINATE
     Indication: REDUCED BLADDER CAPACITY
     Dosage: 1 PILL ONCE DAILY TAKEN BY MOUTH
     Route: 048
     Dates: start: 20150212, end: 20150221
  2. SIMVASTATIN. [Concomitant]
     Active Substance: SIMVASTATIN
  3. BABY ASPIRIN [Concomitant]
     Active Substance: ASPIRIN
  4. SERTRALINE [Concomitant]
     Active Substance: SERTRALINE HYDROCHLORIDE
  5. CALCIUM/VITAMIN D [Concomitant]
     Active Substance: CALCIUM\VITAMIN D
  6. HYDROXYCLORAQUINE [Concomitant]
  7. ONCE-A-DAY VITAMIN [Concomitant]
  8. METFORMIN [Concomitant]
     Active Substance: METFORMIN HYDROCHLORIDE

REACTIONS (3)
  - Erythema [None]
  - Fatigue [None]
  - Mucosal dryness [None]

NARRATIVE: CASE EVENT DATE: 20150220
